FAERS Safety Report 8759442 (Version 2)
Quarter: 2012Q4

REPORT INFORMATION
  Report Type: 
  Country: US (occurrence: US)
  Receive Date: 20120829
  Receipt Date: 20120926
  Transmission Date: 20130627
  Serious: No
  Sender: FDA-Public Use
  Company Number: US-009507513-1208USA001420

PATIENT
  Age: 51 Year
  Sex: Female
  Weight: 55.33 kg

DRUGS (6)
  1. MIRALAX [Suspect]
     Indication: PRODUCT USED FOR UNKNOWN INDICATION
     Dosage: 17 g, qd
     Route: 048
     Dates: start: 2007, end: 2012
  2. MIRALAX [Suspect]
     Indication: MEDICAL OBSERVATION
     Dosage: 17 g, bid
     Route: 048
  3. MIRALAX [Suspect]
     Dosage: 17 g, tid
     Route: 048
  4. FAMOTIDINE [Concomitant]
     Indication: GASTRITIS
     Dosage: UNK, Unknown
  5. VITAMIN D (UNSPECIFIED) [Concomitant]
     Indication: VITAMIN D DEFICIENCY
     Dosage: UNK, Unknown
  6. APO MEDROXY [Concomitant]
     Indication: MENOPAUSE

REACTIONS (4)
  - Adverse event [Recovered/Resolved]
  - Drug effect decreased [Unknown]
  - Overdose [Recovered/Resolved]
  - Incorrect drug administration duration [Unknown]
